FAERS Safety Report 6331988-X (Version None)
Quarter: 2009Q3

REPORT INFORMATION
  Report Type: 
  Country: None (occurrence: None)
  Receive Date: 20090828
  Receipt Date: 20090819
  Transmission Date: 20100115
  Serious: Yes (Hospitalization)
  Sender: FDA-Public Use
  Company Number: US-BIOGENIDEC-2009BI024757

PATIENT
  Sex: Male
  Weight: 106 kg

DRUGS (3)
  1. AVONEX [Suspect]
     Indication: MULTIPLE SCLEROSIS
     Route: 030
     Dates: start: 20011019, end: 20030101
  2. AVONEX [Suspect]
     Route: 030
     Dates: start: 20030101, end: 20090603
  3. AVONEX [Suspect]
     Route: 030
     Dates: start: 20090721

REACTIONS (8)
  - BLOOD POTASSIUM DECREASED [None]
  - CENTRAL LINE INFECTION [None]
  - DYSPNOEA [None]
  - INFLUENZA LIKE ILLNESS [None]
  - MOBILITY DECREASED [None]
  - TREMOR [None]
  - VASCULAR PSEUDOANEURYSM [None]
  - WEIGHT DECREASED [None]
